FAERS Safety Report 5381184-8 (Version None)
Quarter: 2007Q3

REPORT INFORMATION
  Report Type: 
  Country: None (occurrence: None)
  Receive Date: 20070706
  Receipt Date: 20070626
  Transmission Date: 20080115
  Serious: Yes (Disabling)
  Sender: FDA-Public Use
  Company Number: US-MERCK-0704USA00381

PATIENT
  Age: 65 Year
  Sex: Female

DRUGS (6)
  1. JANUVIA [Suspect]
     Indication: TYPE 2 DIABETES MELLITUS
     Route: 048
     Dates: start: 20070330, end: 20070401
  2. JANUVIA [Suspect]
     Route: 048
     Dates: start: 20070101
  3. ZANTAC [Concomitant]
     Route: 048
  4. VITAMINS (UNSPECIFIED) [Concomitant]
     Route: 065
  5. VITAMIN D (UNSPECIFIED) [Concomitant]
     Route: 065
  6. CALCIUM (UNSPECIFIED) [Concomitant]
     Route: 065

REACTIONS (5)
  - GASTROOESOPHAGEAL REFLUX DISEASE [None]
  - IRRITABLE BOWEL SYNDROME [None]
  - NASAL CONGESTION [None]
  - PALPITATIONS [None]
  - RHINORRHOEA [None]
